FAERS Safety Report 15484652 (Version 1)
Quarter: 2018Q4

REPORT INFORMATION
  Report Type: Spontaneous
  Country: US (occurrence: US)
  Receive Date: 20181010
  Receipt Date: 20181010
  Transmission Date: 20190205
  Serious: No
  Sender: FDA-Public Use
  Company Number: US-VIIV HEALTHCARE LIMITED-US2018182827

PATIENT
  Sex: Male

DRUGS (1)
  1. JULUCA [Suspect]
     Active Substance: DOLUTEGRAVIR SODIUM\RILPIVIRINE HYDROCHLORIDE
     Indication: PRODUCT USED FOR UNKNOWN INDICATION
     Dosage: UNK
     Route: 048
     Dates: start: 20180716, end: 20180911

REACTIONS (8)
  - Anxiety [Unknown]
  - Confusional state [Unknown]
  - Condition aggravated [Unknown]
  - Pain [Unknown]
  - Depression [Unknown]
  - Lethargy [Unknown]
  - Ill-defined disorder [Unknown]
  - Fatigue [Unknown]
